FAERS Safety Report 5810262-1 (Version None)
Quarter: 2008Q3

REPORT INFORMATION
  Report Type: 
  Country: None (occurrence: None)
  Receive Date: 20080715
  Receipt Date: 20080129
  Transmission Date: 20090109
  Serious: No
  Sender: FDA-Public Use
  Company Number: A0706089A

PATIENT
  Age: 47 Year
  Sex: Female

DRUGS (15)
  1. IMITREX [Suspect]
     Indication: MIGRAINE
     Dosage: 100MG AS REQUIRED
     Route: 048
     Dates: start: 20071001
  2. IMITREX [Suspect]
     Dosage: 1INJ SINGLE DOSE
     Route: 058
     Dates: start: 20070901, end: 20070901
  3. SKELAXIN [Concomitant]
  4. LYRICA [Concomitant]
  5. MUCINEX [Concomitant]
  6. UNKNOWN DRUG [Concomitant]
  7. TRAMADOL HCL [Concomitant]
  8. SINEQUAN [Concomitant]
  9. LEXAPRO [Concomitant]
  10. ATARAX [Concomitant]
  11. SINGULAIR [Concomitant]
  12. ALLERGY SHOTS [Concomitant]
  13. ANTIBIOTIC [Concomitant]
  14. CELEBREX [Concomitant]
  15. VITAMIN TAB [Concomitant]

REACTIONS (4)
  - BURNING SENSATION [None]
  - DRUG INEFFECTIVE [None]
  - PAIN [None]
  - PARAESTHESIA [None]
